FAERS Safety Report 10877967 (Version 2)
Quarter: 2015Q1

REPORT INFORMATION
  Report Type: Spontaneous
  Country: CZ (occurrence: None)
  Receive Date: 20150224
  Receipt Date: 20150311
  Transmission Date: 20150721
  Serious: Yes (Life-Threatening, Hospitalization)
  Sender: FDA-Public Use
  Company Number: 2015AMD00027

PATIENT
  Age: 40 Year
  Sex: Female

DRUGS (5)
  1. HYDROCORTISONE. [Suspect]
     Active Substance: HYDROCORTISONE
     Route: 048
     Dates: start: 20140318, end: 20140318
  2. EUTHYROX [Suspect]
     Active Substance: LEVOTHYROXINE SODIUM
     Route: 048
     Dates: start: 20140318, end: 20140318
  3. ALCOHOL. [Suspect]
     Active Substance: ALCOHOL
     Dates: start: 20140318, end: 20140318
  4. UNDESTOR (TESTOSTERONE) CAPSULE [Suspect]
     Active Substance: TESTOSTERONE
     Route: 048
     Dates: start: 20140318, end: 20140318
  5. MINIRIN [Suspect]
     Active Substance: DESMOPRESSIN ACETATE
     Route: 048
     Dates: start: 20140318, end: 20140318

REACTIONS (14)
  - Unresponsive to stimuli [None]
  - Confusional state [None]
  - Somnolence [None]
  - Hypoglycaemia [None]
  - Suicide attempt [None]
  - Exposure via ingestion [None]
  - Fibrin D dimer [None]
  - Drug interaction [None]
  - Blood thyroid stimulating hormone decreased [None]
  - Coma [None]
  - Hypokalaemia [None]
  - Hepatic enzyme increased [None]
  - Toxicity to various agents [None]
  - Thyroxine increased [None]

NARRATIVE: CASE EVENT DATE: 20140318
